FAERS Safety Report 4416777-5 (Version None)
Quarter: 2004Q3

REPORT INFORMATION
  Report Type: 
  Country: None (occurrence: None)
  Receive Date: 20040802
  Receipt Date: 20040729
  Transmission Date: 20050211
  Serious: Yes (Life-Threatening, Hospitalization)
  Sender: FDA-Public Use
  Company Number: LTI2004A00165

PATIENT
  Age: 47 Year
  Sex: Male

DRUGS (6)
  1. LANSOPRAZOLE [Suspect]
     Indication: GASTRITIS
     Dosage: 15 MG (15 MG, 1 IN 1 D)
     Route: 048
     Dates: start: 20040430, end: 20040528
  2. LANSOPRAZOLE [Suspect]
     Indication: PROPHYLAXIS AGAINST GASTROINTESTINAL ULCER
     Dosage: 15 MG (15 MG, 1 IN 1 D)
     Route: 048
     Dates: start: 20040430, end: 20040528
  3. BI-PROFENID (KETOPROFEN) (150 MILLIGRAM, TABLETS) [Suspect]
     Indication: SCIATICA
     Dosage: 300 MG (150 MG, 2 IN 1 D)
     Route: 048
     Dates: start: 20040430, end: 20040528
  4. MYOLASTAN (TETRAZEPAM) [Concomitant]
  5. PAROXETINE HCL [Concomitant]
  6. OXAZEPAM [Concomitant]

REACTIONS (4)
  - GASTRIC ULCER HAEMORRHAGE [None]
  - HAEMOGLOBIN DECREASED [None]
  - LOSS OF CONSCIOUSNESS [None]
  - MALAISE [None]
